FAERS Safety Report 21033581 (Version 2)
Quarter: 2022Q3

REPORT INFORMATION
  Report Type: Spontaneous
  Country: GR (occurrence: GR)
  Receive Date: 20220701
  Receipt Date: 20220718
  Transmission Date: 20221027
  Serious: No
  Sender: FDA-Public Use
  Company Number: GR-PFIZER INC-PV202200004654

PATIENT
  Age: 11 Year
  Sex: Male

DRUGS (1)
  1. GENOTROPIN [Suspect]
     Active Substance: SOMATROPIN
     Indication: Growth hormone deficiency
     Dosage: 8 MG (FOR 6 DAYS)
     Route: 058
     Dates: start: 202103

REACTIONS (1)
  - Expired device used [Unknown]

NARRATIVE: CASE EVENT DATE: 20220615
